FAERS Safety Report 25625010 (Version 2)
Quarter: 2025Q3

REPORT INFORMATION
  Report Type: Spontaneous
  Country: US (occurrence: US)
  Receive Date: 20250731
  Receipt Date: 20250917
  Transmission Date: 20251021
  Serious: No
  Sender: ROCHE
  Company Number: US-ROCHE-10000350183

PATIENT
  Sex: Female

DRUGS (1)
  1. HEMLIBRA [Suspect]
     Active Substance: EMICIZUMAB-KXWH
     Indication: Von Willebrand^s disease
     Dosage: STRENGTH: 105 MG/.7 ML
     Route: 058
     Dates: start: 202406

REACTIONS (2)
  - Mouth haemorrhage [Recovered/Resolved]
  - Off label use [Unknown]
